FAERS Safety Report 5799423-8 (Version None)
Quarter: 2008Q3

REPORT INFORMATION
  Report Type: 
  Country: None (occurrence: None)
  Receive Date: 20080703
  Receipt Date: 20080701
  Transmission Date: 20090109
  Serious: Yes (Hospitalization, Other)
  Sender: FDA-Public Use
  Company Number: US-RANBAXY-2008US-15822

PATIENT

DRUGS (4)
  1. MINOCYCLINE HYDROCHLORIDE [Suspect]
     Indication: INFECTION
     Dosage: 100 MG, BID
     Route: 048
     Dates: start: 20080523, end: 20080528
  2. PREDNISONE 50MG TAB [Concomitant]
     Indication: DRUG USE FOR UNKNOWN INDICATION
     Dosage: 40 MG, UNK
     Dates: start: 20040701
  3. PREDNISONE 50MG TAB [Concomitant]
     Dosage: 30 MG, QD
     Dates: start: 20041201
  4. TETRACYCLINE [Concomitant]
     Indication: INFECTION

REACTIONS (4)
  - ANOREXIA [None]
  - CHROMATURIA [None]
  - HEPATITIS [None]
  - VOMITING [None]
